APPROVED DRUG PRODUCT: METHOTREXATE PRESERVATIVE FREE
Active Ingredient: METHOTREXATE SODIUM
Strength: EQ 1GM BASE/VIAL
Dosage Form/Route: INJECTABLE;INJECTION
Application: A040266 | Product #001 | TE Code: AP
Applicant: FRESENIUS KABI USA LLC
Approved: Feb 26, 1999 | RLD: No | RS: No | Type: RX